FAERS Safety Report 8985557 (Version 5)
Quarter: 2013Q3

REPORT INFORMATION
  Report Type: Spontaneous
  Country: BE (occurrence: BE)
  Receive Date: 20121226
  Receipt Date: 20130716
  Transmission Date: 20140515
  Serious: Yes (Other)
  Sender: FDA-Public Use
  Company Number: BE-PFIZER INC-2012270638

PATIENT
  Age: 82 Year
  Sex: Male

DRUGS (7)
  1. CORDARONE [Suspect]
     Indication: ATRIAL FIBRILLATION
     Dosage: 200 MG, 2X/DAY
     Route: 048
     Dates: start: 201209
  2. CORDARONE [Suspect]
     Dosage: 200 MG, DAILY
     Route: 048
     Dates: start: 201210
  3. CORDARONE [Suspect]
     Dosage: 100 MG, 1X/DAY
     Route: 048
  4. VENLAFAXINE HYDROCHLORIDE [Concomitant]
     Indication: ANTIDEPRESSANT THERAPY
     Dosage: 1 CAPSULE 75, UNK
     Dates: start: 201209, end: 201209
  5. TRAZOLAN [Concomitant]
     Indication: ANTIDEPRESSANT THERAPY
     Dosage: HALF A TABLET OF 100, UNK
     Dates: start: 201209, end: 201209
  6. DOGMATIL [Concomitant]
     Indication: SLEEP DISORDER
     Dosage: 0.5 TABLET OF 200, UNK
     Dates: start: 201209, end: 201209
  7. XARELTO [Concomitant]
     Dosage: UNK
     Dates: start: 201209

REACTIONS (13)
  - Drug ineffective [Not Recovered/Not Resolved]
  - Atrial fibrillation [Not Recovered/Not Resolved]
  - Malaise [Recovering/Resolving]
  - Amnesia [Recovering/Resolving]
  - Loss of consciousness [Recovering/Resolving]
  - Polyneuropathy [Unknown]
  - Pain [Not Recovered/Not Resolved]
  - Headache [Not Recovered/Not Resolved]
  - Tremor [Not Recovered/Not Resolved]
  - Balance disorder [Not Recovered/Not Resolved]
  - Sleep disorder [Not Recovered/Not Resolved]
  - Thyroid disorder [Unknown]
  - Weight decreased [Unknown]
